FAERS Safety Report 7783363-9 (Version None)
Quarter: 2011Q3

REPORT INFORMATION
  Report Type: 
  Country: None (occurrence: None)
  Receive Date: 20110928
  Receipt Date: 20110919
  Transmission Date: 20111222
  Serious: Yes (Other)
  Sender: FDA-Public Use
  Company Number: DE-JNJFOC-20110908938

PATIENT
  Sex: Male

DRUGS (7)
  1. IFOSFAMIDE [Suspect]
     Route: 065
  2. FRAGMIN [Suspect]
     Indication: HEPATOBLASTOMA
     Route: 058
  3. IFOSFAMIDE [Suspect]
     Indication: HEPATOBLASTOMA
     Route: 065
  4. DOXORUBICIN HYDROCHLORIDE [Suspect]
     Indication: HEPATOBLASTOMA
     Route: 042
  5. CISPLATIN [Suspect]
     Indication: HEPATOBLASTOMA
     Route: 065
  6. CISPLATIN [Suspect]
     Route: 065
  7. DOXORUBICIN HYDROCHLORIDE [Suspect]
     Route: 042

REACTIONS (3)
  - PLEURAL EFFUSION [None]
  - DRUG RESISTANCE [None]
  - OFF LABEL USE [None]
